FAERS Safety Report 5726892-1 (Version None)
Quarter: 2008Q2

REPORT INFORMATION
  Report Type: 
  Country: None (occurrence: None)
  Receive Date: 20080502
  Receipt Date: 20080422
  Transmission Date: 20081010
  Serious: Yes (Other)
  Sender: FDA-Public Use
  Company Number: BR-PFIZER INC-2008036122

PATIENT
  Sex: Female
  Weight: 64 kg

DRUGS (3)
  1. DOSTINEX [Suspect]
     Indication: ADENOMA BENIGN
     Route: 048
  2. PARLODEL [Suspect]
     Indication: ADENOMA BENIGN
  3. SYNTHROID [Concomitant]

REACTIONS (11)
  - APATHY [None]
  - BLADDER PROLAPSE [None]
  - BLOOD PRESSURE DECREASED [None]
  - BLOOD PROLACTIN INCREASED [None]
  - DIZZINESS [None]
  - FEELING ABNORMAL [None]
  - INSOMNIA [None]
  - MALAISE [None]
  - MICTURITION URGENCY [None]
  - RENAL COLIC [None]
  - URETHRAL PAIN [None]
